FAERS Safety Report 9252851 (Version 2)
Quarter: 2013Q3

REPORT INFORMATION
  Report Type: Spontaneous
  Country: JP (occurrence: JP)
  Receive Date: 20130424
  Receipt Date: 20130702
  Transmission Date: 20140515
  Serious: Yes (Other)
  Sender: FDA-Public Use
  Company Number: JP-PFIZER INC-2013128614

PATIENT
  Age: 27 Year
  Sex: Female

DRUGS (1)
  1. RELPAX [Suspect]
     Dosage: 20 MG/DAY
     Route: 048

REACTIONS (1)
  - Dermal cyst [Unknown]
